FAERS Safety Report 4478506-9 (Version None)
Quarter: 2004Q4

REPORT INFORMATION
  Report Type: 
  Country: None (occurrence: None)
  Receive Date: 20041019
  Receipt Date: 20041005
  Transmission Date: 20050328
  Serious: Yes (Other)
  Sender: FDA-Public Use
  Company Number: HQWYE608607OCT04

PATIENT
  Sex: Female

DRUGS (2)
  1. ENBREL [Suspect]
     Indication: DRUG USE FOR UNKNOWN INDICATION
     Route: 058
     Dates: start: 20040707, end: 20040912
  2. ARTIFICIAL TEARS [Concomitant]
     Dosage: UNKNOWN
     Dates: start: 19960101

REACTIONS (4)
  - CORNEAL ULCER [None]
  - DISEASE PROGRESSION [None]
  - KERATITIS [None]
  - KERATOCONJUNCTIVITIS SICCA [None]
